FAERS Safety Report 9288004 (Version 5)
Quarter: 2015Q1

REPORT INFORMATION
  Report Type: Report from Study
  Country: US (occurrence: US)
  Receive Date: 20130514
  Receipt Date: 20150218
  Transmission Date: 20150721
  Serious: Yes (Death, Other)
  Sender: FDA-Public Use
  Company Number: US-ROCHE-1221463

PATIENT

DRUGS (1)
  1. CEFTRIAXONE. [Suspect]
     Active Substance: CEFTRIAXONE
     Indication: AMYOTROPHIC LATERAL SCLEROSIS
     Route: 065

REACTIONS (22)
  - Thrombosis in device [Unknown]
  - Thrombosis [Unknown]
  - Pneumonia [Unknown]
  - Cerebral ischaemia [Unknown]
  - Pruritus [Unknown]
  - Neutropenia [Unknown]
  - Dyspnoea [Unknown]
  - Pseudomembranous colitis [Unknown]
  - Pulmonary oedema [Unknown]
  - Diarrhoea [Unknown]
  - Cholelithiasis [Unknown]
  - Cholecystitis [Unknown]
  - Sinus disorder [Unknown]
  - Aspartate aminotransferase abnormal [Unknown]
  - Clostridium difficile colitis [Unknown]
  - Sudden death [Fatal]
  - Embolism [Unknown]
  - Subarachnoid haemorrhage [Unknown]
  - Pancreatitis [Unknown]
  - Device related infection [Unknown]
  - Alanine aminotransferase abnormal [Unknown]
  - Hot flush [Unknown]
